FAERS Safety Report 18774351 (Version 1)
Quarter: 2021Q1

REPORT INFORMATION
  Report Type: Spontaneous
  Country: US (occurrence: US)
  Receive Date: 20210122
  Receipt Date: 20210122
  Transmission Date: 20210419
  Serious: Yes (Other)
  Sender: FDA-Public Use
  Company Number: None

PATIENT
  Age: 43 Year
  Sex: Female
  Weight: 101.1 kg

DRUGS (2)
  1. OCREVUS [Concomitant]
     Active Substance: OCRELIZUMAB
     Dates: start: 20201006
  2. OCREVUS [Suspect]
     Active Substance: OCRELIZUMAB
     Indication: MULTIPLE SCLEROSIS
     Route: 042
     Dates: start: 20210106, end: 20210120

REACTIONS (8)
  - Anxiety [None]
  - Feeling abnormal [None]
  - Crying [None]
  - Fatigue [None]
  - Emotional disorder [None]
  - Anger [None]
  - Emotional distress [None]
  - Disturbance in attention [None]

NARRATIVE: CASE EVENT DATE: 20201007
